FAERS Safety Report 5281298-7 (Version None)
Quarter: 2007Q1

REPORT INFORMATION
  Report Type: 
  Country: None (occurrence: None)
  Receive Date: 20061221
  Receipt Date: 20060522
  Transmission Date: 20070707
  Serious: No
  Sender: FDA-Public Use
  Company Number: SP00868

PATIENT
  Sex: Male

DRUGS (1)
  1. XIFAXAN [Suspect]
     Indication: DIARRHOEA
     Dosage: 200MG/TID, ORAL
     Route: 048
     Dates: start: 20060518

REACTIONS (4)
  - FLATULENCE [None]
  - FREQUENT BOWEL MOVEMENTS [None]
  - GASTROINTESTINAL MOTILITY DISORDER [None]
  - PYREXIA [None]
